FAERS Safety Report 6787376-5 (Version None)
Quarter: 2010Q2

REPORT INFORMATION
  Report Type: 
  Country: None (occurrence: None)
  Receive Date: 20100623
  Receipt Date: 20061214
  Transmission Date: 20101027
  Serious: Yes (Other)
  Sender: FDA-Public Use
  Company Number: US-PFIZER INC-2006121561

PATIENT
  Sex: Female
  Weight: 94.8 kg

DRUGS (5)
  1. ACCURETIC [Suspect]
     Indication: HYPERTENSION
     Dosage: 1 TABLET,QD
     Dates: start: 20050101
  2. ZYRTEC [Concomitant]
     Indication: HYPERSENSITIVITY
  3. PREVACID [Concomitant]
  4. RHINOCORT [Concomitant]
  5. ELAVIL [Concomitant]

REACTIONS (2)
  - BLOOD PRESSURE INCREASED [None]
  - HEADACHE [None]
